FAERS Safety Report 4562088-7 (Version None)
Quarter: 2005Q1

REPORT INFORMATION
  Report Type: 
  Country: None (occurrence: None)
  Receive Date: 20050125
  Receipt Date: 20050111
  Transmission Date: 20050727
  Serious: Yes (Congenital Anomaly)
  Sender: FDA-Public Use
  Company Number: GXKR2005GB00460

PATIENT
  Sex: Male

DRUGS (8)
  1. FUROSEMIDE [Suspect]
     Dosage: TRANSPLANCENTAL
     Route: 064
  2. ACETYLSALICYLIC ACID SRT [Suspect]
     Dosage: TRANSPLACENTAL
     Route: 064
  3. POTASSIUM CHLORIDE [Suspect]
     Dosage: TRANSPLACENTAL
     Route: 064
  4. SPIRONOLACTONE [Suspect]
     Dosage: TRANSPLACENTAL
     Route: 064
  5. PENICILLAMINE [Suspect]
     Dosage: TRANSPLACENTAL
     Route: 064
  6. DEXAMETHASONE [Suspect]
     Dosage: TRANSPLACENTAL
     Route: 064
  7. ACETAMINOPHEN [Suspect]
     Dosage: TRANSPLACENTAL
     Route: 064
  8. FERROGRAD C(FERROUS SULFATE EXSICCATED, SODIUM ASCORBATE) [Suspect]
     Dosage: TRANSPLACENTAL
     Route: 064

REACTIONS (3)
  - ADRENOGENITAL SYNDROME [None]
  - DRUG EXPOSURE DURING PREGNANCY [None]
  - TESTICULAR DISORDER [None]
